FAERS Safety Report 4410405-0 (Version None)
Quarter: 2004Q2

REPORT INFORMATION
  Report Type: 
  Country: None (occurrence: None)
  Receive Date: 20040618
  Receipt Date: 20040428
  Transmission Date: 20050107
  Serious: No
  Sender: FDA-Public Use
  Company Number: US-JNJFOC-20040500023

PATIENT
  Age: 21 Year
  Sex: Female
  Weight: 63.5036 kg

DRUGS (6)
  1. ORTHO EVRA [Suspect]
     Indication: MENSTRUATION IRREGULAR
     Dosage: 1 DOSE(S), 3 IN 4 WEEK, TRANSDERMAL
     Route: 062
  2. SERZONE [Concomitant]
  3. EFFEXOR XR [Concomitant]
  4. XANAX [Concomitant]
  5. ATAROL (PARACETAMOL) [Concomitant]
  6. ALBUTEROL [Concomitant]

REACTIONS (1)
  - MENSTRUATION IRREGULAR [None]
